FAERS Safety Report 7398860-8 (Version None)
Quarter: 2011Q2

REPORT INFORMATION
  Report Type: 
  Country: None (occurrence: None)
  Receive Date: 20110404
  Receipt Date: 20110404
  Transmission Date: 20111010
  Serious: Yes (Other)
  Sender: FDA-Public Use
  Company Number: None

PATIENT
  Age: 62 Year
  Sex: Female
  Weight: 83.9154 kg

DRUGS (1)
  1. PREDNISONE [Suspect]
     Indication: INFLAMMATION
     Dosage: 20MG TID PO
     Route: 048
     Dates: start: 20110315, end: 20110319

REACTIONS (7)
  - MUSCULOSKELETAL STIFFNESS [None]
  - ANXIETY [None]
  - ANGER [None]
  - ARTHRALGIA [None]
  - TENDON PAIN [None]
  - PAIN [None]
  - ASTHENIA [None]
